FAERS Safety Report 6348300-2 (Version None)
Quarter: 2009Q3

REPORT INFORMATION
  Report Type: 
  Country: None (occurrence: None)
  Receive Date: 20090908
  Receipt Date: 20090824
  Transmission Date: 20100115
  Serious: Yes (Hospitalization)
  Sender: FDA-Public Use
  Company Number: APP200900531

PATIENT
  Age: 67 Year
  Sex: Female

DRUGS (1)
  1. HEPARIN SODIUM INJECTION [Suspect]
     Indication: PERITONEAL DIALYSIS
     Dates: start: 20080301, end: 20080401

REACTIONS (14)
  - ASTHENIA [None]
  - CATHETER RELATED INFECTION [None]
  - CONFUSIONAL STATE [None]
  - CONVULSION [None]
  - HEADACHE [None]
  - HEART RATE INCREASED [None]
  - HYPERACUSIS [None]
  - HYPERHIDROSIS [None]
  - NAUSEA [None]
  - PERITONITIS [None]
  - PHOTOPHOBIA [None]
  - PYREXIA [None]
  - SHOCK [None]
  - SYNCOPE [None]
